FAERS Safety Report 21471390 (Version 1)
Quarter: 2022Q4

REPORT INFORMATION
  Report Type: Spontaneous
  Country: US (occurrence: None)
  Receive Date: 20221017
  Receipt Date: 20221017
  Transmission Date: 20230113
  Serious: Yes (Disabling)
  Sender: FDA-Public Use
  Company Number: None

PATIENT
  Age: 64 Year
  Sex: Female
  Weight: 85.5 kg

DRUGS (21)
  1. EVENITY [Suspect]
     Active Substance: ROMOSOZUMAB-AQQG
     Indication: Osteoporosis
     Route: 058
     Dates: start: 20210920, end: 20220830
  2. ELIQUIS [Concomitant]
     Active Substance: APIXABAN
  3. ESZOPICLONE [Concomitant]
     Active Substance: ESZOPICLONE
  4. MONTELUKASR-SOD [Concomitant]
  5. BUPROPION HYDROCHLORIDE [Concomitant]
     Active Substance: BUPROPION HYDROCHLORIDE
  6. NEBIVOLOL [Concomitant]
     Active Substance: NEBIVOLOL
  7. FUROSEMIDE [Concomitant]
     Active Substance: FUROSEMIDE
  8. VALACYCLOVIR [Concomitant]
     Active Substance: VALACYCLOVIR HYDROCHLORIDE
  9. PANTOPRAZOLE SODIUM [Concomitant]
     Active Substance: PANTOPRAZOLE SODIUM
  10. LEVOTHYROXINE [Concomitant]
     Active Substance: LEVOTHYROXINE
  11. MOMETASONE FUROATE [Concomitant]
  12. LORATADINE [Concomitant]
     Active Substance: LORATADINE
  13. ASPIRIN [Concomitant]
     Active Substance: ASPIRIN
  14. VITAFUSION WOMENS GUMMY MULTIVITAMINS ENERGY METABOLISM + BONE SUPPORT [Concomitant]
  15. VITAMINE B COMPLEX SUPPLEMENT ENERGY METABOLISM SUPPORT [Concomitant]
  16. VITAMIN E 400IU DL-ALPHA SOFT GELS [Concomitant]
  17. RENEWLIFE EXTRA CARE PROBIOTIC 30 BILLION LIVE CULTURES [Concomitant]
  18. CHOLECALCIFEROL [Concomitant]
     Active Substance: CHOLECALCIFEROL
  19. ACETAMINOPHEN [Concomitant]
  20. MUCUS RELIEF ER DM (GUAIFENSIN 600MG + DEXTROMETHORPHAN HBR [Concomitant]
  21. ARM + HAMMER SIMPLY SALINE NASAL MIST [Concomitant]

REACTIONS (4)
  - Pain in extremity [None]
  - Groin pain [None]
  - Pain in extremity [None]
  - Arthritis [None]

NARRATIVE: CASE EVENT DATE: 20220101
